FAERS Safety Report 6824638-7 (Version None)
Quarter: 2010Q3

REPORT INFORMATION
  Report Type: 
  Country: None (occurrence: None)
  Receive Date: 20100708
  Receipt Date: 20061112
  Transmission Date: 20110219
  Serious: No
  Sender: FDA-Public Use
  Company Number: US-PFIZER INC-2006140467

PATIENT
  Sex: Female
  Weight: 56.25 kg

DRUGS (1)
  1. CHANTIX [Suspect]
     Indication: SMOKING CESSATION THERAPY
     Dates: start: 20061106

REACTIONS (3)
  - CHEST PAIN [None]
  - DYSPEPSIA [None]
  - INSOMNIA [None]
